FAERS Safety Report 9440830 (Version 2)
Quarter: 2013Q3

REPORT INFORMATION
  Report Type: Spontaneous
  Country: IE (occurrence: IE)
  Receive Date: 20130805
  Receipt Date: 20130810
  Transmission Date: 20140515
  Serious: No
  Sender: FDA-Public Use
  Company Number: IE-ROCHE-1256821

PATIENT
  Sex: Male

DRUGS (2)
  1. TAMIFLU [Suspect]
     Indication: PRODUCT USED FOR UNKNOWN INDICATION
     Route: 065
  2. TAMIFLU [Suspect]
     Route: 065

REACTIONS (1)
  - Medication error [Unknown]
